FAERS Safety Report 5684113-2 (Version None)
Quarter: 2008Q1

REPORT INFORMATION
  Report Type: 
  Country: None (occurrence: None)
  Receive Date: 20080328
  Receipt Date: 20070709
  Transmission Date: 20080703
  Serious: No
  Sender: FDA-Public Use
  Company Number: US-AMGEN-US232907

PATIENT
  Age: 55 Year
  Sex: Male

DRUGS (4)
  1. NEULASTA [Suspect]
     Indication: CHEMOTHERAPY
     Route: 065
     Dates: start: 20070401
  2. PENTOSTATIN [Concomitant]
     Route: 065
  3. RITUXIMAB [Concomitant]
     Route: 065
  4. CYCLOPHOSPHAMIDE [Concomitant]
     Route: 065

REACTIONS (4)
  - BONE MARROW FAILURE [None]
  - CHOLESTASIS [None]
  - PANCYTOPENIA [None]
  - PYREXIA [None]
